FAERS Safety Report 14735454 (Version 5)
Quarter: 2020Q3

REPORT INFORMATION
  Report Type: Report from Study
  Country: US (occurrence: US)
  Receive Date: 20180409
  Receipt Date: 20200909
  Transmission Date: 20201102
  Serious: No
  Sender: FDA-Public Use
  Company Number: US-IPSEN BIOPHARMACEUTICALS, INC.-2017-14531

PATIENT
  Age: 2 Year
  Sex: Male
  Weight: 14.1 kg

DRUGS (9)
  1. BACLOFEN. [Concomitant]
     Active Substance: BACLOFEN
     Indication: MUSCLE SPASTICITY
     Route: 048
     Dates: start: 20170619, end: 20180227
  2. DYSPORT [Suspect]
     Active Substance: ABOBOTULINUMTOXINA
     Indication: MUSCLE SPASTICITY
     Dosage: 400 INTERNATIONAL UNITS
     Route: 030
     Dates: start: 20171108, end: 20171108
  3. ALBUTEROL. [Concomitant]
     Active Substance: ALBUTEROL
     Indication: TRACHEAL DILATION PROCEDURE
     Route: 055
     Dates: start: 20180618, end: 20180621
  4. BACLOFEN. [Concomitant]
     Active Substance: BACLOFEN
     Route: 048
     Dates: start: 20170619, end: 20180227
  5. CLARITIN [Concomitant]
     Active Substance: LORATADINE
     Indication: ALLERGY PROPHYLAXIS
     Route: 048
     Dates: start: 20171221
  6. DYSPORT [Suspect]
     Active Substance: ABOBOTULINUMTOXINA
     Indication: OFF LABEL USE
  7. BACLOFEN. [Concomitant]
     Active Substance: BACLOFEN
     Route: 048
     Dates: start: 20180227
  8. DYSPORT [Suspect]
     Active Substance: ABOBOTULINUMTOXINA
     Indication: MUSCLE SPASTICITY
  9. ALBUTEROL. [Concomitant]
     Active Substance: ALBUTEROL
     Indication: LUNG DISORDER
     Route: 055
     Dates: start: 20180618, end: 20180621

REACTIONS (5)
  - Rhinitis allergic [Recovered/Resolved]
  - Pyrexia [Recovered/Resolved]
  - Foreign body [Recovered/Resolved]
  - Off label use [Unknown]
  - Influenza [Recovered/Resolved]

NARRATIVE: CASE EVENT DATE: 20171108
